FAERS Safety Report 10967207 (Version 1)
Quarter: 2015Q1

REPORT INFORMATION
  Report Type: Spontaneous
  Country: US (occurrence: US)
  Receive Date: 20150330
  Receipt Date: 20150330
  Transmission Date: 20150721
  Serious: Yes (Other)
  Sender: FDA-Public Use
  Company Number: US-PFIZER INC-2015106936

PATIENT
  Age: 30 Year
  Sex: Male
  Weight: 84 kg

DRUGS (1)
  1. VIAGRA [Suspect]
     Active Substance: SILDENAFIL CITRATE
     Indication: ERECTILE DYSFUNCTION
     Dosage: UNK
     Dates: start: 20150302, end: 20150312

REACTIONS (5)
  - Sebaceous gland disorder [Not Recovered/Not Resolved]
  - Off label use [Recovered/Resolved]
  - Phimosis [Recovered/Resolved]
  - Skin odour abnormal [Not Recovered/Not Resolved]
  - Penile adhesion [Recovered/Resolved]

NARRATIVE: CASE EVENT DATE: 20150302
